FAERS Safety Report 24762643 (Version 3)
Quarter: 2025Q1

REPORT INFORMATION
  Report Type: Spontaneous
  Country: JP (occurrence: JP)
  Receive Date: 20241221
  Receipt Date: 20250217
  Transmission Date: 20250409
  Serious: Yes (Other)
  Sender: ROCHE
  Company Number: JP-CHUGAI-2024039147

PATIENT
  Age: 83 Year
  Sex: Male
  Weight: 60.4 kg

DRUGS (1)
  1. VABYSMO [Suspect]
     Active Substance: FARICIMAB-SVOA
     Indication: Retinal vein occlusion
     Route: 031
     Dates: start: 20240627, end: 20240627

REACTIONS (1)
  - Retinal aneurysm rupture [Recovering/Resolving]

NARRATIVE: CASE EVENT DATE: 20240628
